FAERS Safety Report 11376577 (Version 1)
Quarter: 2015Q3

REPORT INFORMATION
  Report Type: Spontaneous
  Country: JP (occurrence: JP)
  Receive Date: 20150813
  Receipt Date: 20150813
  Transmission Date: 20151125
  Serious: Yes (Hospitalization, Other)
  Sender: FDA-Public Use
  Company Number: JP-PFIZER INC-2015185308

PATIENT
  Age: 89 Year
  Sex: Female
  Weight: 43 kg

DRUGS (4)
  1. CELECOX [Suspect]
     Active Substance: CELECOXIB
     Indication: PAIN
  2. WARFARIN [Suspect]
     Active Substance: WARFARIN
     Indication: DEEP VEIN THROMBOSIS
     Dosage: 2 MG, 1X/DAY
     Route: 048
     Dates: start: 20110620, end: 20150513
  3. CELECOX [Suspect]
     Active Substance: CELECOXIB
     Indication: CERVICAL MYELOPATHY
     Dosage: 200 MG, 1X/DAY
     Route: 048
     Dates: start: 20150105, end: 20150518
  4. ANPLAG [Suspect]
     Active Substance: SARPOGRELATE
     Indication: CERVICAL MYELOPATHY
     Dosage: 1 DF, 3X/DAY
     Route: 048
     Dates: start: 20100727, end: 20150512

REACTIONS (3)
  - Extremity necrosis [Unknown]
  - Haematochezia [Recovered/Resolved]
  - International normalised ratio increased [Recovered/Resolved]

NARRATIVE: CASE EVENT DATE: 20150403
